FAERS Safety Report 20217082 (Version 1)
Quarter: 2021Q4

REPORT INFORMATION
  Report Type: Spontaneous
  Country: US (occurrence: None)
  Receive Date: 20211222
  Receipt Date: 20211222
  Transmission Date: 20220304
  Serious: Yes (Other)
  Sender: FDA-Public Use
  Company Number: None

PATIENT
  Age: 89 Year
  Sex: Male
  Weight: 78.47 kg

DRUGS (13)
  1. ABIRATERONE [Suspect]
     Active Substance: ABIRATERONE
     Indication: Prostate cancer
     Dosage: FREQUENCY : DAILY;?
     Route: 048
     Dates: start: 20191011
  2. ATORVASTATIN [Concomitant]
     Active Substance: ATORVASTATIN
  3. BICALUTAMIDE [Concomitant]
     Active Substance: BICALUTAMIDE
  4. SIMBRINZA [Concomitant]
     Active Substance: BRIMONIDINE TARTRATE\BRINZOLAMIDE
  5. FOLIC ACID [Concomitant]
     Active Substance: FOLIC ACID
  6. ELIGARD [Concomitant]
     Active Substance: LEUPROLIDE ACETATE
  7. LISINOPRIL [Concomitant]
     Active Substance: LISINOPRIL
  8. TOPROL XL [Concomitant]
     Active Substance: METOPROLOL SUCCINATE
  9. PREDNISONE [Concomitant]
     Active Substance: PREDNISONE
  10. Potassium Chlor [Concomitant]
  11. LEUPROLIDE [Concomitant]
     Active Substance: LEUPROLIDE
  12. BENADRYL [Concomitant]
     Active Substance: DIPHENHYDRAMINE HYDROCHLORIDE
  13. BENZONATATE [Concomitant]
     Active Substance: BENZONATATE

REACTIONS (2)
  - Disease progression [None]
  - Drug ineffective [None]
